FAERS Safety Report 7104124-X (Version None)
Quarter: 2010Q4

REPORT INFORMATION
  Report Type: 
  Country: None (occurrence: None)
  Receive Date: 20101115
  Receipt Date: 20100527
  Transmission Date: 20110411
  Serious: No
  Sender: FDA-Public Use
  Company Number: US-ALLERGAN-1006976US

PATIENT
  Sex: Female

DRUGS (2)
  1. BOTOX COSMETIC [Suspect]
     Indication: SKIN WRINKLING
     Dosage: 20 UNITS, SINGLE
     Route: 030
     Dates: start: 20100526, end: 20100526
  2. LIPID LOWERING AGENT [Concomitant]

REACTIONS (3)
  - HYPOAESTHESIA ORAL [None]
  - SWOLLEN TONGUE [None]
  - TONGUE DISORDER [None]
